FAERS Safety Report 10285192 (Version 1)
Quarter: 2014Q3

REPORT INFORMATION
  Report Type: Spontaneous
  Country: US (occurrence: US)
  Receive Date: 20140708
  Receipt Date: 20140708
  Transmission Date: 20150326
  Serious: Yes (Hospitalization, Other)
  Sender: FDA-Public Use
  Company Number: PHHY2014US083185

PATIENT
  Age: 33 Year
  Sex: Female

DRUGS (12)
  1. COCAINE [Suspect]
     Active Substance: COCAINE
  2. ALCOHOL. [Suspect]
     Active Substance: ALCOHOL
  3. LEVETIRACETAM. [Suspect]
     Active Substance: LEVETIRACETAM
     Indication: CONVULSION
     Dosage: 500 MG, BID
  4. HALOPERIDOL. [Suspect]
     Active Substance: HALOPERIDOL
     Dosage: 7 MG, TOTAL DOSE
     Route: 030
  5. METHADONE [Suspect]
     Active Substance: METHADONE HYDROCHLORIDE
     Indication: DRUG DEPENDENCE
  6. LORAZEPAM. [Suspect]
     Active Substance: LORAZEPAM
     Dosage: 2 MG, TOTAL DOSE
     Route: 030
  7. LEVETIRACETAM. [Suspect]
     Active Substance: LEVETIRACETAM
     Dosage: 1000 MG, BID
  8. DIACETYLMORPHINE [Suspect]
     Active Substance: DIACETYLMORPHINE
  9. ANTIBIOTICS [Suspect]
     Active Substance: UNSPECIFIED INGREDIENT
     Indication: URINARY TRACT INFECTION
     Route: 048
  10. LEVETIRACETAM. [Suspect]
     Active Substance: LEVETIRACETAM
     Dosage: 1250 MG, BID
  11. PHENYTOIN. [Suspect]
     Active Substance: PHENYTOIN
     Indication: EPILEPSY
  12. DIPHENHYDRAMINE [Suspect]
     Active Substance: DIPHENHYDRAMINE
     Dosage: 25 MG, TOTAL DOSE
     Route: 030

REACTIONS (17)
  - Irritability [Recovered/Resolved]
  - Memory impairment [Recovered/Resolved]
  - Decreased interest [Recovered/Resolved]
  - Social avoidant behaviour [Recovered/Resolved]
  - Agitation [Recovered/Resolved]
  - Mental status changes [Recovered/Resolved]
  - Maternal exposure during pregnancy [Unknown]
  - Inappropriate affect [Recovered/Resolved]
  - Fatigue [Unknown]
  - Aggression [Recovered/Resolved]
  - Paranoia [Recovered/Resolved]
  - Substance-induced psychotic disorder [Recovered/Resolved]
  - Abnormal behaviour [Recovered/Resolved]
  - Substance abuse [Unknown]
  - Hallucination, auditory [Recovered/Resolved]
  - Insomnia [Recovered/Resolved]
  - Fear [Recovered/Resolved]
